FAERS Safety Report 5091071-0 (Version None)
Quarter: 2006Q3

REPORT INFORMATION
  Report Type: 
  Country: None (occurrence: None)
  Receive Date: 20060829
  Receipt Date: 20060705
  Transmission Date: 20061208
  Serious: Yes (Life-Threatening)
  Sender: FDA-Public Use
  Company Number: 2006AP03107

PATIENT
  Age: 9 Year
  Sex: Male
  Weight: 32.5 kg

DRUGS (2)
  1. XYLOCAINE [Suspect]
     Indication: LOCAL ANAESTHESIA
     Route: 041
     Dates: start: 20020917, end: 20020917
  2. LACTEC [Concomitant]
     Route: 041
     Dates: start: 20020917, end: 20020917

REACTIONS (4)
  - ANAESTHETIC COMPLICATION [None]
  - CARDIAC ARREST [None]
  - CONVULSION [None]
  - OVERDOSE [None]
